FAERS Safety Report 4521084-6 (Version None)
Quarter: 2004Q4

REPORT INFORMATION
  Report Type: 
  Country: None (occurrence: None)
  Receive Date: 20041206
  Receipt Date: 20041124
  Transmission Date: 20050328
  Serious: Yes (Hospitalization)
  Sender: FDA-Public Use
  Company Number: 209527

PATIENT
  Age: 53 Year
  Sex: Female
  Weight: 68 kg

DRUGS (4)
  1. MABTHERA (RITUXIMAB) CONC FOR SOLUTION FOR INFUSION [Suspect]
     Indication: NON-HODGKIN'S LYMPHOMA
     Dosage: 700 MG, INTRAVENOUS
     Route: 042
     Dates: start: 20040906, end: 20040906
  2. ACETAMINOPHEN [Concomitant]
  3. PREDNISOLONE [Concomitant]
  4. ANTIHISTAMINE NOS [Concomitant]

REACTIONS (9)
  - CHILLS [None]
  - DERMATITIS ALLERGIC [None]
  - DIARRHOEA [None]
  - ERYTHEMA [None]
  - MUSCULOSKELETAL DISCOMFORT [None]
  - NEUTROPENIA [None]
  - PYREXIA [None]
  - THROMBOCYTOPENIA [None]
  - VASCULITIS [None]
